FAERS Safety Report 8181252-1 (Version None)
Quarter: 2012Q1

REPORT INFORMATION
  Report Type: 
  Country: None (occurrence: None)
  Receive Date: 20120302
  Receipt Date: 20120223
  Transmission Date: 20120608
  Serious: Yes (Hospitalization, Other)
  Sender: FDA-Public Use
  Company Number: US-BAYER-2011-068199

PATIENT
  Age: 32 Year
  Sex: Female
  Weight: 81.633 kg

DRUGS (5)
  1. YAZ [Suspect]
     Indication: ACNE
  2. ANAPROX [Concomitant]
     Indication: DYSMENORRHOEA
  3. YAZ [Suspect]
     Indication: CONTRACEPTION
     Dosage: UNK
     Dates: start: 20070418, end: 20081206
  4. YAZ [Suspect]
     Indication: PREMENSTRUAL SYNDROME
  5. YAZ [Suspect]

REACTIONS (4)
  - CHOLECYSTITIS CHRONIC [None]
  - POST PROCEDURAL INFECTION [None]
  - CHOLELITHIASIS [None]
  - ABDOMINAL PAIN [None]
